FAERS Safety Report 6787722-2 (Version None)
Quarter: 2010Q2

REPORT INFORMATION
  Report Type: 
  Country: None (occurrence: None)
  Receive Date: 20100623
  Receipt Date: 20071026
  Transmission Date: 20101027
  Serious: Yes (Hospitalization, Other)
  Sender: FDA-Public Use
  Company Number: US-PFIZER INC-2007045070

PATIENT
  Sex: Female

DRUGS (1)
  1. SUTENT [Suspect]
     Indication: RENAL CELL CARCINOMA
     Dosage: QD;DAILY
     Route: 048
     Dates: start: 20070501

REACTIONS (10)
  - ANAEMIA [None]
  - BLOOD AMYLASE INCREASED [None]
  - FLUID RETENTION [None]
  - HEADACHE [None]
  - HYPOAESTHESIA [None]
  - LIPASE INCREASED [None]
  - LIVER FUNCTION TEST ABNORMAL [None]
  - PAIN [None]
  - PLATELET COUNT DECREASED [None]
  - PYREXIA [None]
